FAERS Safety Report 18693436 (Version 4)
Quarter: 2021Q1

REPORT INFORMATION
  Report Type: Report from Study
  Country: US (occurrence: US)
  Receive Date: 20210104
  Receipt Date: 20210122
  Transmission Date: 20210419
  Serious: Yes (Death, Hospitalization)
  Sender: FDA-Public Use
  Company Number: US-ROCHE-2741985

PATIENT
  Age: 74 Year
  Sex: Male
  Weight: 77.6 kg

DRUGS (2)
  1. POLATUZUMAB VEDOTIN. [Suspect]
     Active Substance: POLATUZUMAB VEDOTIN
     Indication: B-CELL LYMPHOMA
     Dosage: THE START DATE OF MOST RECENT DOSE OF POLATUZUMAB VEDOTIN (140  MG) PRIOR TO SAE (SERIOUS ADVERSE EV
     Route: 042
     Dates: start: 20201214
  2. MOSUNETUZUMAB. [Suspect]
     Active Substance: MOSUNETUZUMAB
     Indication: B-CELL LYMPHOMA
     Dosage: THE START DATE OF MOST RECENT DOSE OF MOSUNETUZUMAB (2 MG) PRIOR TO SAE (SERIOUS ADVERSE EVENT) ONSE
     Route: 042
     Dates: start: 20201214

REACTIONS (4)
  - Cytokine release syndrome [Recovering/Resolving]
  - Immune effector cell-associated neurotoxicity syndrome [Recovered/Resolved]
  - Delirium [Recovering/Resolving]
  - Pneumonia [Fatal]

NARRATIVE: CASE EVENT DATE: 20201227
